FAERS Safety Report 5066726-4 (Version None)
Quarter: 2006Q3

REPORT INFORMATION
  Report Type: 
  Country: None (occurrence: None)
  Receive Date: 20060728
  Receipt Date: 20060718
  Transmission Date: 20061208
  Serious: Yes (Hospitalization, Other)
  Sender: FDA-Public Use
  Company Number: 2006-06-1545

PATIENT
  Age: 74 Year
  Sex: Female

DRUGS (2)
  1. TEMODAR [Suspect]
     Indication: GLIOBLASTOMA
     Dosage: 75 MG/M2 ORAL
     Route: 048
     Dates: start: 20060427, end: 20060529
  2. RADIATION THERAPY [Suspect]
     Indication: GLIOBLASTOMA MULTIFORME
     Dosage: TOTAL 75 GY
     Dates: start: 20060427, end: 20060614

REACTIONS (12)
  - APLASTIC ANAEMIA [None]
  - ATRIAL FIBRILLATION [None]
  - BONE MARROW FAILURE [None]
  - ESCHERICHIA INFECTION [None]
  - HYPOTENSION [None]
  - HYPOVENTILATION [None]
  - HYPOXIA [None]
  - ISCHAEMIC HEPATITIS [None]
  - LIVER FUNCTION TEST ABNORMAL [None]
  - MENTAL STATUS CHANGES [None]
  - TACHYPNOEA [None]
  - UROSEPSIS [None]
